FAERS Safety Report 4455548-0 (Version None)
Quarter: 2004Q3

REPORT INFORMATION
  Report Type: 
  Country: None (occurrence: None)
  Receive Date: 20040917
  Receipt Date: 20040909
  Transmission Date: 20050211
  Serious: Yes (Hospitalization, Other)
  Sender: FDA-Public Use
  Company Number: 2004064627

PATIENT
  Age: 77 Year
  Sex: Male
  Weight: 92.9874 kg

DRUGS (5)
  1. NORVASC [Suspect]
     Indication: BLOOD PRESSURE
     Dosage: 5 MG (5 MG, 1 IN 1 D), ORAL
     Route: 048
  2. NEURONTIN [Suspect]
     Indication: BACK PAIN
     Dosage: (3 IN 1 D), ORAL
     Route: 048
     Dates: start: 20040623
  3. TOLTERODINE TARTRATE [Suspect]
     Indication: POLLAKIURIA
     Dosage: (1 D), ORAL
     Route: 048
     Dates: start: 20040901
  4. TAMSULOSIN (TAMSULOSIN) [Suspect]
     Indication: POLLAKIURIA
     Dates: start: 20040901
  5. TERAZOSIN HYDROCHLORIDE [Concomitant]

REACTIONS (7)
  - BACK PAIN [None]
  - DRUG EFFECT DECREASED [None]
  - DRUG INEFFECTIVE [None]
  - INSOMNIA [None]
  - PAIN IN EXTREMITY [None]
  - POLLAKIURIA [None]
  - PROSTATE CANCER [None]
